FAERS Safety Report 6646125-1 (Version None)
Quarter: 2010Q1

REPORT INFORMATION
  Report Type: 
  Country: None (occurrence: None)
  Receive Date: 20100323
  Receipt Date: 20100315
  Transmission Date: 20100710
  Serious: Yes (Other)
  Sender: FDA-Public Use
  Company Number: TW-JNJFOC-20090801027

PATIENT
  Age: 37 Year
  Sex: Female
  Weight: 55 kg

DRUGS (3)
  1. ACETAMINOPHEN [Suspect]
     Route: 048
  2. ACETAMINOPHEN [Suspect]
     Indication: SUICIDE ATTEMPT
     Route: 048
  3. ALCOHOL [Suspect]
     Indication: DRUG USE FOR UNKNOWN INDICATION
     Route: 048

REACTIONS (9)
  - ASCITES [None]
  - BLOOD THROMBOPLASTIN DECREASED [None]
  - HAEMATEMESIS [None]
  - LIVER INJURY [None]
  - OESOPHAGITIS [None]
  - OVERDOSE [None]
  - PLEURAL EFFUSION [None]
  - THROMBOCYTOPENIA [None]
  - ULCER [None]
